FAERS Safety Report 20244266 (Version 2)
Quarter: 2022Q1

REPORT INFORMATION
  Report Type: Spontaneous
  Country: JP (occurrence: JP)
  Receive Date: 20211229
  Receipt Date: 20220113
  Transmission Date: 20220424
  Serious: Yes (Life-Threatening, Hospitalization, Other)
  Sender: FDA-Public Use
  Company Number: JP-ASTELLAS-2020JP007840

PATIENT
  Age: 76 Year
  Sex: Female

DRUGS (14)
  1. PROGRAF [Suspect]
     Active Substance: TACROLIMUS
     Indication: Rheumatoid arthritis
     Route: 048
     Dates: end: 20200609
  2. MINODRONIC ACID [Suspect]
     Active Substance: MINODRONIC ACID
     Indication: Osteoporosis
     Route: 048
  3. CELECOXIB [Suspect]
     Active Substance: CELECOXIB
     Indication: Rheumatoid arthritis
     Route: 048
     Dates: start: 20190116
  4. METHOTREXATE [Suspect]
     Active Substance: METHOTREXATE
     Indication: Rheumatoid arthritis
     Route: 065
     Dates: start: 20190213
  5. METHOTREXATE [Suspect]
     Active Substance: METHOTREXATE
     Route: 065
     Dates: start: 20190219
  6. METHOTREXATE [Suspect]
     Active Substance: METHOTREXATE
     Route: 048
     Dates: start: 20190227, end: 20200605
  7. TACROLIMUS [Suspect]
     Active Substance: TACROLIMUS
     Indication: Rheumatoid arthritis
     Route: 065
     Dates: start: 20190213
  8. TACROLIMUS [Suspect]
     Active Substance: TACROLIMUS
     Route: 065
     Dates: start: 20190327
  9. TACROLIMUS [Suspect]
     Active Substance: TACROLIMUS
     Route: 048
     Dates: start: 20190422, end: 20200608
  10. ATORVASTATIN [Suspect]
     Active Substance: ATORVASTATIN
     Indication: Lipids abnormal
     Route: 048
  11. ALFACALCIDOL [Suspect]
     Active Substance: ALFACALCIDOL
     Indication: Osteoporosis
     Dosage: 0.25 ?G, ONCE DAILY
     Route: 048
  12. EDOXABAN TOSYLATE [Suspect]
     Active Substance: EDOXABAN TOSYLATE
     Indication: Thrombosis prophylaxis
     Route: 048
  13. ISCOTIN [Suspect]
     Active Substance: ISONIAZID
     Indication: Antibiotic prophylaxis
     Route: 048
  14. CYMBALTA [Suspect]
     Active Substance: DULOXETINE HYDROCHLORIDE
     Indication: Product used for unknown indication
     Route: 048

REACTIONS (1)
  - Interstitial lung disease [Unknown]

NARRATIVE: CASE EVENT DATE: 20200602
